FAERS Safety Report 7262679-9 (Version None)
Quarter: 2011Q1

REPORT INFORMATION
  Report Type: 
  Country: None (occurrence: None)
  Receive Date: 20110130
  Receipt Date: 20100927
  Transmission Date: 20110831
  Serious: No
  Sender: FDA-Public Use
  Company Number: PR-ABBOTT-10P-163-0673615-00

PATIENT
  Sex: Female
  Weight: 81.72 kg

DRUGS (13)
  1. ASPIRIN [Concomitant]
     Indication: PRODUCT USED FOR UNKNOWN INDICATION
     Dosage: 1 TAB IN ALTERNATE DAYS
     Route: 048
  2. PLAVIX [Concomitant]
     Indication: PRODUCT USED FOR UNKNOWN INDICATION
     Dosage: 1 TAB IN ALTERNATE DAY
     Route: 048
  3. SINGULAIR [Concomitant]
     Indication: SLEEP APNOEA SYNDROME
     Route: 048
  4. GLIMEPIRIDE [Concomitant]
     Indication: DIABETES MELLITUS
     Route: 048
  5. HYDROXYCHLOROQUINE [Concomitant]
     Indication: RHEUMATOID ARTHRITIS
     Route: 048
  6. NORVASC [Concomitant]
     Indication: HYPERTENSION
     Route: 048
  7. HUMIRA [Suspect]
     Indication: RHEUMATOID ARTHRITIS
     Dosage: 1 PEN EVERY 15 DAYS
     Route: 058
     Dates: start: 20100801
  8. AVAPRO [Concomitant]
     Indication: HYPERTENSION
     Route: 048
  9. NEURONTIN [Concomitant]
     Indication: NEUROPATHY PERIPHERAL
     Route: 048
  10. AZULFIDINE [Concomitant]
     Indication: PRODUCT USED FOR UNKNOWN INDICATION
     Route: 048
  11. METOPROLOL XL [Concomitant]
     Indication: HYPERTENSION
     Route: 048
  12. NEUSIN SL [Concomitant]
     Indication: NERVOUS SYSTEM DISORDER
     Route: 060
  13. METFORMIN [Concomitant]
     Indication: DIABETES MELLITUS
     Route: 048

REACTIONS (4)
  - INJECTION SITE HAEMATOMA [None]
  - INJECTION SITE PRURITUS [None]
  - INJECTION SITE INFLAMMATION [None]
  - INJURY ASSOCIATED WITH DEVICE [None]
